FAERS Safety Report 18618760 (Version 1)
Quarter: 2020Q4

REPORT INFORMATION
  Report Type: Spontaneous
  Country: US (occurrence: US)
  Receive Date: 20201215
  Receipt Date: 20201215
  Transmission Date: 20210114
  Serious: No
  Sender: FDA-Public Use
  Company Number: None

PATIENT
  Age: 49 Year
  Sex: Female
  Weight: 63.45 kg

DRUGS (22)
  1. HYDROCORTISONE. [Concomitant]
     Active Substance: HYDROCORTISONE
  2. TRAZODONE HYDROCHLORIDE. [Concomitant]
     Active Substance: TRAZODONE HYDROCHLORIDE
  3. OXYCODONE HYDROCHLORIDE. [Concomitant]
     Active Substance: OXYCODONE HYDROCHLORIDE
  4. FENTANYL CITRATE (PF) [Concomitant]
  5. FAMCICLOVIR. [Concomitant]
     Active Substance: FAMCICLOVIR
  6. ATENOLOL. [Concomitant]
     Active Substance: ATENOLOL
  7. ISOSORBIDE MONONITRATE ER [Concomitant]
     Active Substance: ISOSORBIDE MONONITRATE
  8. OPDIVO [Suspect]
     Active Substance: NIVOLUMAB
     Indication: LUNG NEOPLASM MALIGNANT
     Dosage: ?          OTHER FREQUENCY:EVERY 2 WEEKS;?
     Route: 042
     Dates: start: 20201116, end: 20201215
  9. DEXILANT [Concomitant]
     Active Substance: DEXLANSOPRAZOLE
  10. BUPROPION HCL ER (XL) [Concomitant]
     Active Substance: BUPROPION HYDROCHLORIDE
  11. APREPITANT. [Concomitant]
     Active Substance: APREPITANT
  12. PROMETHAZINE HCL [Concomitant]
     Active Substance: PROMETHAZINE HYDROCHLORIDE
  13. AMITIZA [Concomitant]
     Active Substance: LUBIPROSTONE
  14. AMLODIPINE BESYLATE. [Concomitant]
     Active Substance: AMLODIPINE BESYLATE
  15. ROSUVASTATIN CALCIUM. [Concomitant]
     Active Substance: ROSUVASTATIN CALCIUM
  16. DEXTROAMPHETAMINE SULFATE. [Concomitant]
     Active Substance: DEXTROAMPHETAMINE SULFATE
  17. MOUTHWASH-AF [Concomitant]
  18. OXYCONTIN [Concomitant]
     Active Substance: OXYCODONE HYDROCHLORIDE
  19. ADVAIR DISKUS [Concomitant]
     Active Substance: FLUTICASONE PROPIONATE\SALMETEROL XINAFOATE
  20. LOSARTAN POTASSIUM. [Concomitant]
     Active Substance: LOSARTAN POTASSIUM
  21. LEVOTHYROXINE SODIUM. [Concomitant]
     Active Substance: LEVOTHYROXINE SODIUM
  22. OXCARBAZEPINE. [Concomitant]
     Active Substance: OXCARBAZEPINE

REACTIONS (1)
  - Hospice care [None]

NARRATIVE: CASE EVENT DATE: 20201215
